FAERS Safety Report 7868352-8 (Version None)
Quarter: 2011Q4

REPORT INFORMATION
  Report Type: 
  Country: None (occurrence: None)
  Receive Date: 20111028
  Receipt Date: 20111006
  Transmission Date: 20120403
  Serious: Yes (Hospitalization, Other)
  Sender: FDA-Public Use
  Company Number: US-ROCHE-GNE247956

PATIENT
  Sex: Female
  Weight: 84.09 kg

DRUGS (50)
  1. PREGABALIN [Concomitant]
     Dosage: AT BED TIME,ROUTE:PER ORAL
     Dates: start: 20081001
  2. METHADONE HCL [Concomitant]
     Dates: start: 20100701
  3. METHOTREXATE [Concomitant]
     Dates: start: 20061001
  4. LANSOPRAZOLE [Concomitant]
     Dates: end: 20080801
  5. IBANDRONATE SODIUM [Concomitant]
     Dates: start: 20060608, end: 20060801
  6. TRIAMCINOLONE ACETONIDE [Concomitant]
     Dosage: MDI 02 PUFFS
     Dates: start: 20070201, end: 20100101
  7. EPINEPHRINE [Suspect]
     Indication: PRODUCT USED FOR UNKNOWN INDICATION
     Route: 065
     Dates: start: 20070801, end: 20070801
  8. LORTAB [Concomitant]
     Dosage: 10/650 MG
  9. ETANERCEPT [Concomitant]
     Route: 058
     Dates: start: 20061001, end: 20070101
  10. FLUCONAZOLE [Concomitant]
     Dates: start: 20090101
  11. METOPROLOL SUCCINATE [Concomitant]
     Route: 048
  12. OMEPRAZOLE [Concomitant]
  13. MULTI-VITAMIN [Concomitant]
     Dosage: ROUTE:PER ORAL
  14. TADALAFIL [Concomitant]
     Dates: start: 20070301, end: 20071101
  15. FOLIC ACID [Concomitant]
     Indication: PRODUCT USED FOR UNKNOWN INDICATION
  16. SAVELLA [Concomitant]
     Dosage: ROUTE:PER ORAL
  17. LACTOBACILLUS ACIDOPHILUS [Concomitant]
     Dosage: END DATE:/JAN/ (YEAR UNSPECIFIED)
     Dates: start: 20040801
  18. MODAFINIL [Concomitant]
     Dates: start: 20060701, end: 20060801
  19. INFLUENZA VACCINE [Concomitant]
     Indication: IMMUNISATION
     Dates: start: 20081001
  20. PNEUMOCOCCAL VACCINE [Concomitant]
     Dates: start: 20100701
  21. ADALIMUMAB [Suspect]
     Indication: RHEUMATOID ARTHRITIS
     Dosage: 40 MG/0.8 ML, DRUG:HUMIRA PEN
     Route: 058
     Dates: start: 20070101, end: 20071101
  22. CYANOCOBALAMIN-TANNIN COMPLEX [Concomitant]
     Route: 030
     Dates: start: 20060101
  23. ALENDRONATE SODIUM [Concomitant]
     Dates: start: 20110701
  24. CLONAZEPAM [Concomitant]
     Dosage: DOSE:0.5 MG AT BEDTIME
     Dates: start: 20061201
  25. MEFENAMIC ACID [Concomitant]
     Indication: HOT FLUSH
     Dosage: HERBAL SUPPLEMENT
  26. MONTELUKAST SODIUM [Concomitant]
     Dates: start: 20040801, end: 20050101
  27. DULOXETINE HYDROCHLORIDE [Concomitant]
     Dates: start: 20090101, end: 20100701
  28. HYDROXYCHLOROQUINE SULFATE [Concomitant]
     Dates: start: 20100101
  29. MENINGOCOCCAL POLYSACCHARIDE VACCINE [Concomitant]
     Dates: start: 20110501
  30. MABTHERA [Suspect]
     Indication: RHEUMATOID ARTHRITIS
     Dosage: 1000 MG, SINGLE
     Route: 042
     Dates: start: 20070731, end: 20070801
  31. FEXOFENADINE HCL [Concomitant]
  32. OMEPRAZOLE [Concomitant]
     Dates: start: 20080801
  33. HYDROCODONE BITARTRATE [Concomitant]
     Dosage: DOSE:10/650 MG,ROUTE:PER ORAL
  34. ESTROGENS CONJUGATED [Concomitant]
     Indication: IMMUNISATION
     Dates: end: 20090501
  35. BUPROPION HYDROCHLORIDE [Concomitant]
     Dates: start: 20080801, end: 20090101
  36. CYANOCOBALAMIN-TANNIN COMPLEX [Concomitant]
     Indication: PRODUCT USED FOR UNKNOWN INDICATION
     Dates: start: 20060101
  37. PREDNISONE [Concomitant]
     Dosage: ROUTE:PER ORAL,DATE/JUN/ (YEAR UNSPECIFIED)
  38. ESTROGENS CONJUGATED [Concomitant]
     Dates: start: 20100701
  39. BUPROPION HYDROCHLORIDE [Concomitant]
     Dates: start: 20061001, end: 20070101
  40. QUALAQUIN [Concomitant]
     Dates: start: 20070701
  41. FOLIC ACID [Concomitant]
     Dates: start: 20061001
  42. CYANOCOBALAMIN-TANNIN COMPLEX [Concomitant]
     Route: 060
     Dates: end: 20050101
  43. MULTI-VITAMINS [Concomitant]
  44. ASPIRIN [Concomitant]
     Dosage: ROUTE:PER ORAL
  45. ALENDRONATE SODIUM [Concomitant]
     Dates: start: 20051001
  46. FLUDROCORTISONE ACETATE [Concomitant]
     Dosage: ROUTE:PER ORAL
     Dates: start: 20050801
  47. CALCIUM [Concomitant]
     Dates: end: 20041101
  48. ESTROGENS CONJUGATED [Concomitant]
     Dosage: DOSE 0.625 GTT ON MTF
     Dates: start: 20060401, end: 20090501
  49. VENLAFAXINE HYDROCHLORIDE [Concomitant]
     Dates: start: 20070101, end: 20080801
  50. ERGOCALCIFEROL [Concomitant]
     Dosage: SL ONCE DAILY,START DATE:SEP (YEAR UNSPECIFIED), END DATE:JAN (YEAR UNSPECIFIED)

REACTIONS (13)
  - BIOPSY LIP [None]
  - HERPES ZOSTER [None]
  - UNEVALUABLE EVENT [None]
  - JOINT SWELLING [None]
  - IMMUNE SYSTEM DISORDER [None]
  - MYOCARDIAL INFARCTION [None]
  - THYROID NEOPLASM [None]
  - PAIN [None]
  - OEDEMA PERIPHERAL [None]
  - FIBROMYALGIA [None]
  - CATARACT [None]
  - ARTHRALGIA [None]
  - DRUG INEFFECTIVE [None]
